FAERS Safety Report 5225439-6 (Version None)
Quarter: 2007Q1

REPORT INFORMATION
  Report Type: 
  Country: None (occurrence: None)
  Receive Date: 20070131
  Receipt Date: 20070125
  Transmission Date: 20070707
  Serious: Yes (Other)
  Sender: FDA-Public Use
  Company Number: US-PFIZER INC-2007006848

PATIENT

DRUGS (3)
  1. CADUET [Suspect]
  2. LIPITOR [Suspect]
     Dates: start: 20020101
  3. NORVASC [Suspect]

REACTIONS (2)
  - HEPATITIS [None]
  - LIVER FUNCTION TEST ABNORMAL [None]
